FAERS Safety Report 4760530-X (Version None)
Quarter: 2005Q3

REPORT INFORMATION
  Report Type: 
  Country: None (occurrence: None)
  Receive Date: 20050902
  Receipt Date: 20050822
  Transmission Date: 20060218
  Serious: Yes (Hospitalization, Other)
  Sender: FDA-Public Use
  Company Number: US-MERCK-0508USA04146

PATIENT
  Age: 77 Year
  Sex: Female
  Weight: 64 kg

DRUGS (15)
  1. VIOXX [Suspect]
     Indication: OSTEOARTHRITIS
     Route: 048
     Dates: start: 20020209, end: 20020704
  2. ASPIRIN [Concomitant]
     Route: 065
  3. VASOTEC RPD [Concomitant]
     Route: 065
  4. VITAMINS (UNSPECIFIED) [Concomitant]
     Route: 065
  5. OCUFLOX [Concomitant]
     Route: 065
  6. PATANOL [Concomitant]
     Route: 065
  7. ALPRAZOLAM [Concomitant]
     Route: 065
  8. KLOR-CON [Concomitant]
     Route: 065
  9. FUROSEMIDE [Concomitant]
     Route: 065
  10. PREMARIN [Concomitant]
     Route: 065
  11. PERCOCET [Concomitant]
     Route: 065
  12. ZANTAC [Concomitant]
     Route: 065
  13. TOPROL-XL [Concomitant]
     Route: 065
  14. VITAMINS (UNSPECIFIED) [Concomitant]
     Route: 065
  15. FERROUS SULFATE [Concomitant]
     Route: 065

REACTIONS (14)
  - ANAEMIA [None]
  - CHEST PAIN [None]
  - CHOLELITHIASIS [None]
  - DEEP VEIN THROMBOSIS [None]
  - DEPRESSION [None]
  - DIARRHOEA [None]
  - HAEMORRHAGIC STROKE [None]
  - HYPERTENSION [None]
  - MYOCARDIAL INFARCTION [None]
  - ORTHOSTATIC HYPOTENSION [None]
  - PLEURAL EFFUSION [None]
  - PULMONARY EMBOLISM [None]
  - PYREXIA [None]
  - RESPIRATORY ARREST [None]
